FAERS Safety Report 24812422 (Version 2)
Quarter: 2025Q1

REPORT INFORMATION
  Report Type: Report from Study
  Country: UA (occurrence: UA)
  Receive Date: 20250106
  Receipt Date: 20250113
  Transmission Date: 20250409
  Serious: Yes (Other)
  Sender: PFIZER
  Company Number: UA-TAKEDA-2024TUS122210

PATIENT
  Age: 52 Year
  Sex: Male

DRUGS (1)
  1. BRENTUXIMAB VEDOTIN [Suspect]
     Active Substance: BRENTUXIMAB VEDOTIN
     Indication: Hodgkin^s disease stage IV
     Route: 042
     Dates: start: 20240913

REACTIONS (2)
  - Second primary malignancy [Unknown]
  - Bronchial neoplasm [Unknown]
